FAERS Safety Report 6786493-3 (Version None)
Quarter: 2010Q2

REPORT INFORMATION
  Report Type: 
  Country: None (occurrence: None)
  Receive Date: 20100623
  Receipt Date: 20100614
  Transmission Date: 20101027
  Serious: Yes (Hospitalization)
  Sender: FDA-Public Use
  Company Number: B0660372A

PATIENT
  Sex: Female

DRUGS (3)
  1. DEROXAT [Suspect]
     Indication: PARKINSON'S DISEASE
     Dosage: 10MG PER DAY
     Route: 048
  2. STALEVO 100 [Suspect]
     Indication: PARKINSON'S DISEASE
     Dosage: 150MG FOUR TIMES PER DAY
     Route: 048
     Dates: start: 20080101
  3. AZILECT [Suspect]
     Indication: PARKINSON'S DISEASE
     Dosage: 1MG PER DAY
     Route: 048
     Dates: start: 20100301

REACTIONS (10)
  - AMNESIA [None]
  - DYSKINESIA [None]
  - FALL [None]
  - LOSS OF CONSCIOUSNESS [None]
  - PAIN [None]
  - PUBIS FRACTURE [None]
  - REFLEXES ABNORMAL [None]
  - SYNCOPE [None]
  - TREMOR [None]
  - WOUND [None]
